FAERS Safety Report 9832734 (Version 4)
Quarter: 2014Q2

REPORT INFORMATION
  Report Type: Spontaneous
  Country: GB (occurrence: GB)
  Receive Date: 20140121
  Receipt Date: 20140502
  Transmission Date: 20141212
  Serious: Yes (Life-Threatening, Hospitalization, Other)
  Sender: FDA-Public Use
  Company Number: PHFR2014GB000504

PATIENT
  Age: 47 Year
  Sex: Male

DRUGS (10)
  1. CLOZARIL [Suspect]
     Indication: SCHIZOAFFECTIVE DISORDER
     Dosage: 200 MG, UNK
     Route: 048
     Dates: start: 20010701, end: 20140103
  2. CLOZARIL [Suspect]
     Dosage: UNK
     Route: 048
  3. OLANZAPINE [Suspect]
     Dosage: 10 MG (STAT)
     Dates: start: 20140106, end: 20140106
  4. OLANZAPINE [Suspect]
     Dosage: 10 MG, UNK
     Route: 048
     Dates: start: 20140106, end: 20140106
  5. HALOPERIDOL [Suspect]
     Dosage: UNK
  6. HALOPERIDOL [Suspect]
     Dosage: UKN, PRN, (5 TO 10 MG MAXIMUM UPTO 30 MG )PRN
     Route: 048
     Dates: start: 20131220
  7. HALOPERIDOL [Suspect]
     Dosage: UNK, 5 TO 10 MG MAXIMUM UPTO 30 MG, PRN
     Route: 065
     Dates: start: 20131220
  8. LITHIUM [Concomitant]
     Dosage: UNK
  9. ANTIDEPRESSANTS [Concomitant]
     Dosage: UNK
  10. LORAZEPAM [Concomitant]
     Dosage: UNK

REACTIONS (4)
  - Neuroleptic malignant syndrome [Recovered/Resolved]
  - Dysphagia [Recovered/Resolved]
  - White blood cell count increased [Recovered/Resolved]
  - Neutrophil count increased [Recovered/Resolved]
